FAERS Safety Report 5690349-7 (Version None)
Quarter: 2008Q2

REPORT INFORMATION
  Report Type: 
  Country: None (occurrence: None)
  Receive Date: 20080401
  Receipt Date: 20030529
  Transmission Date: 20081010
  Serious: Yes (Death)
  Sender: FDA-Public Use
  Company Number: US-ROCHE-339066

PATIENT
  Age: 52 Year
  Sex: Female

DRUGS (3)
  1. PEGASYS [Suspect]
     Route: 058
     Dates: start: 20030501
  2. COPEGUS [Suspect]
     Route: 048
     Dates: start: 20030501
  3. PAIN MEDICATION NOS [Concomitant]
     Indication: BACK PAIN
     Route: 048

REACTIONS (1)
  - DEATH [None]
